FAERS Safety Report 14157896 (Version 3)
Quarter: 2017Q4

REPORT INFORMATION
  Report Type: Report from Study
  Country: JP (occurrence: JP)
  Receive Date: 20171105
  Receipt Date: 20171120
  Transmission Date: 20180321
  Serious: Yes (Other)
  Sender: FDA-Public Use
  Company Number: JP-CONCORDIA PHARMACEUTICALS INC.-GSH201711-006226

PATIENT
  Age: 36 Year
  Sex: Female

DRUGS (5)
  1. PREDNISOLONE. [Suspect]
     Active Substance: PREDNISOLONE
  2. 5-AMINOSALICYLATE (5-ASA) [Suspect]
     Active Substance: MESALAMINE
     Dosage: 1ST TRIMESTER (1?12 WK)
  3. CYTAPHERESIS [Suspect]
     Active Substance: DEVICE
     Dosage: 2ND TRIMESTER (13?26 WK)
  4. 5-AMINOSALICYLATE (5-ASA) [Suspect]
     Active Substance: MESALAMINE
     Dosage: 2ND TRIMESTER (13?26 WK)
  5. 5-AMINOSALICYLATE (5-ASA) [Suspect]
     Active Substance: MESALAMINE
     Dosage: 3RD TRIMESTER (27?42 WK)

REACTIONS (4)
  - Disease recurrence [Unknown]
  - Live birth [Unknown]
  - Exposure during pregnancy [Unknown]
  - Drug ineffective [Unknown]
